FAERS Safety Report 9370592 (Version 3)
Quarter: 2014Q2

REPORT INFORMATION
  Report Type: Spontaneous
  Country: IT (occurrence: IT)
  Receive Date: 20130626
  Receipt Date: 20140606
  Transmission Date: 20141212
  Serious: Yes (Other)
  Sender: FDA-Public Use
  Company Number: IT-TEVA-414123ISR

PATIENT
  Age: 48 Year
  Sex: Male

DRUGS (2)
  1. AMOXICILLIN [Suspect]
     Indication: PHARYNGITIS
     Dosage: 1 DOSAGE FORMS DAILY;
     Route: 048
     Dates: start: 20130426, end: 20130426
  2. ANTRA 10 MG [Concomitant]
     Dosage: MODIFIED RELEASE HARD CAPSULE

REACTIONS (3)
  - Lip oedema [Recovered/Resolved]
  - Palatal oedema [Recovered/Resolved]
  - Vomiting [Recovered/Resolved]
